FAERS Safety Report 7635176-6 (Version None)
Quarter: 2011Q3

REPORT INFORMATION
  Report Type: 
  Country: None (occurrence: None)
  Receive Date: 20110718
  Receipt Date: 20110708
  Transmission Date: 20111222
  Serious: No
  Sender: FDA-Public Use
  Company Number: 2011SP029522

PATIENT
  Age: 75 Year
  Sex: Female

DRUGS (4)
  1. CYMBALTA [Suspect]
     Indication: DEPRESSION
     Dates: start: 20110603
  2. REMERON [Suspect]
     Indication: DEPRESSION
     Dosage: 15 MG;QD;PO; 45 MG;QD;PO; 30 MG;QD;PO
     Route: 048
     Dates: start: 20110608
  3. REMERON [Suspect]
     Indication: DEPRESSION
     Dosage: 15 MG;QD;PO; 45 MG;QD;PO; 30 MG;QD;PO
     Route: 048
     Dates: start: 20110603
  4. REMERON [Suspect]
     Indication: DEPRESSION
     Dosage: 15 MG;QD;PO; 45 MG;QD;PO; 30 MG;QD;PO
     Route: 048
     Dates: start: 20110606

REACTIONS (1)
  - DELIRIUM [None]
